FAERS Safety Report 24572763 (Version 1)
Quarter: 2024Q4

REPORT INFORMATION
  Report Type: Report from Study
  Country: GB (occurrence: GB)
  Receive Date: 20241101
  Receipt Date: 20241101
  Transmission Date: 20250114
  Serious: Yes (Other)
  Sender: NOVARTIS
  Company Number: GB-002147023-NVSC2024GB209673

PATIENT
  Sex: Female

DRUGS (1)
  1. MAYZENT [Suspect]
     Active Substance: SIPONIMOD
     Indication: Multiple sclerosis
     Dosage: 2 MG, QD
     Route: 048
     Dates: start: 2024

REACTIONS (9)
  - Hypokinesia [Unknown]
  - Immunodeficiency [Unknown]
  - Confusional state [Unknown]
  - Vertigo [Unknown]
  - Heart rate irregular [Unknown]
  - Liver function test abnormal [Unknown]
  - Fall [Unknown]
  - Limb injury [Not Recovered/Not Resolved]
  - Blood pressure fluctuation [Unknown]
